FAERS Safety Report 20652413 (Version 10)
Quarter: 2023Q2

REPORT INFORMATION
  Report Type: Report from Study
  Country: US (occurrence: US)
  Receive Date: 20220330
  Receipt Date: 20230517
  Transmission Date: 20230721
  Serious: No
  Sender: FDA-Public Use
  Company Number: US-NOVARTISTESTPH-NVSC2022US071369

PATIENT
  Sex: Male

DRUGS (1)
  1. COSENTYX [Suspect]
     Active Substance: SECUKINUMAB
     Indication: Psoriasis
     Dosage: UNK
     Route: 058

REACTIONS (6)
  - Injection site pain [Unknown]
  - Injection site bruising [Unknown]
  - Device defective [Unknown]
  - Wrong technique in device usage process [Unknown]
  - Injection site discharge [Unknown]
  - Drug ineffective [Unknown]
